FAERS Safety Report 20831064 (Version 2)
Quarter: 2022Q3

REPORT INFORMATION
  Report Type: Report from Study
  Country: DE (occurrence: DE)
  Receive Date: 20220515
  Receipt Date: 20220721
  Transmission Date: 20221027
  Serious: No
  Sender: FDA-Public Use
  Company Number: DE-CELGENE-DEU-20211007742

PATIENT
  Age: 34 Year
  Sex: Female
  Weight: 87 kg

DRUGS (2)
  1. OZANIMOD [Suspect]
     Active Substance: OZANIMOD
     Indication: Multiple sclerosis
     Dosage: FREQUENCY : 1*1.
     Route: 048
     Dates: start: 20210916
  2. OZANIMOD [Suspect]
     Active Substance: OZANIMOD
     Indication: Relapsing-remitting multiple sclerosis

REACTIONS (2)
  - Lymphopenia [Recovered/Resolved]
  - Nasopharyngitis [Recovered/Resolved]

NARRATIVE: CASE EVENT DATE: 20211007
